FAERS Safety Report 5921621-0 (Version None)
Quarter: 2008Q4

REPORT INFORMATION
  Report Type: 
  Country: None (occurrence: None)
  Receive Date: 20081016
  Receipt Date: 20081016
  Transmission Date: 20090506
  Serious: Yes (Hospitalization)
  Sender: FDA-Public Use
  Company Number: None

PATIENT
  Age: 34 Year
  Sex: Female
  Weight: 43 kg

DRUGS (1)
  1. ENOXAPARIN SODIUM [Suspect]
     Indication: PULMONARY EMBOLISM
     Dosage: 60 MG Q12H SQ
     Route: 058
     Dates: start: 20081007, end: 20081009

REACTIONS (4)
  - CHEST PAIN [None]
  - HEADACHE [None]
  - NAUSEA [None]
  - VOMITING [None]
